FAERS Safety Report 18792181 (Version 4)
Quarter: 2021Q2

REPORT INFORMATION
  Report Type: Report from Study
  Country: None (occurrence: US)
  Receive Date: 20210126
  Receipt Date: 20210426
  Transmission Date: 20210717
  Serious: Yes (Hospitalization)
  Sender: FDA-Public Use
  Company Number: US-ABBVIE-21K-163-3742012-00

PATIENT
  Age: 62 Year
  Sex: Female
  Weight: 52.21 kg

DRUGS (5)
  1. VENCLEXTA [Suspect]
     Active Substance: VENETOCLAX
     Indication: ACUTE LYMPHOCYTIC LEUKAEMIA
     Dosage: WEEK 2?100MG DAILY WEEK 3, 200MG DAILY WEEK 4, THEN 400MG DAILY
     Route: 048
     Dates: start: 20210113, end: 20210114
  2. COVID?19 VACCINE NOS. [Concomitant]
     Active Substance: COVID-19 VACCINE NOS
     Indication: COVID-19 IMMUNISATION
     Dosage: MODERNA
     Route: 030
     Dates: start: 20210213, end: 20210213
  3. OBINUTUZUMAB. [Concomitant]
     Active Substance: OBINUTUZUMAB
     Indication: PRODUCT USED FOR UNKNOWN INDICATION
     Dosage: 28 DAYS
     Route: 065
     Dates: start: 20201214
  4. VENCLEXTA [Suspect]
     Active Substance: VENETOCLAX
     Indication: CHRONIC LYMPHOCYTIC LEUKAEMIA
     Dosage: WEEK 1
     Route: 048
     Dates: start: 20210105, end: 20210112
  5. COVID?19 VACCINE NOS. [Concomitant]
     Active Substance: COVID-19 VACCINE NOS
     Dosage: MODERNA
     Route: 030
     Dates: start: 20210318, end: 20210318

REACTIONS (6)
  - Erythema [Recovered/Resolved]
  - Palpitations [Unknown]
  - Heart rate irregular [Recovered/Resolved]
  - Cardiac flutter [Unknown]
  - Flushing [Unknown]
  - Palpitations [Recovered/Resolved]

NARRATIVE: CASE EVENT DATE: 202101
